FAERS Safety Report 23339377 (Version 1)
Quarter: 2023Q4

REPORT INFORMATION
  Report Type: Spontaneous
  Country: US (occurrence: US)
  Receive Date: 20231226
  Receipt Date: 20231226
  Transmission Date: 20240110
  Serious: Yes (Hospitalization)
  Sender: FDA-Public Use
  Company Number: US-FMCRTG-FMC-2312-001428

PATIENT
  Age: 81 Year
  Sex: Female
  Weight: 46.5 kg

DRUGS (3)
  1. DELFLEX [Suspect]
     Active Substance: CALCIUM CHLORIDE\DEXTROSE\MAGNESIUM CHLORIDE\SODIUM CHLORIDE\SODIUM LACTATE
     Indication: End stage renal disease
     Dosage: 7 DAYS-A-WEEK, EXCHANGES = 4, FILL VOLUME = 1700 ML, DWELL TIME = 1.5 HOURS, LAST FILL = N/A, DAYTIM
     Route: 033
     Dates: start: 20231011
  2. DELFLEX WITH DEXTROSE 2.5% LOW MAGNESIUM LOW CALCIUM [Suspect]
     Active Substance: CALCIUM CHLORIDE\DEXTROSE\MAGNESIUM CHLORIDE\SODIUM CHLORIDE\SODIUM LACTATE
     Indication: End stage renal disease
     Dosage: 7 DAYS-A-WEEK, EXCHANGES = 4, FILL VOLUME = 1700 ML, DWELL TIME = 1.5 HOURS, LAST FILL = N/A, DAYTIM
     Route: 033
     Dates: start: 20231011
  3. DELFLEX WITH DEXTROSE 4.25% LOW MAGNESIUM LOW CALCIUM [Suspect]
     Active Substance: CALCIUM CHLORIDE\DEXTROSE\MAGNESIUM CHLORIDE\SODIUM CHLORIDE\SODIUM LACTATE
     Indication: End stage renal disease
     Dosage: 7 DAYS-A-WEEK, EXCHANGES = 4, FILL VOLUME = 1700 ML, DWELL TIME = 1.5 HOURS, LAST FILL = N/A, DAYTIM
     Route: 033
     Dates: start: 20231011

REACTIONS (2)
  - Blood potassium increased [Recovered/Resolved]
  - Hypotension [Recovered/Resolved]

NARRATIVE: CASE EVENT DATE: 20231201
